FAERS Safety Report 17726456 (Version 2)
Quarter: 2020Q3

REPORT INFORMATION
  Report Type: Report from Study
  Country: None (occurrence: US)
  Receive Date: 20200430
  Receipt Date: 20200716
  Transmission Date: 20201102
  Serious: Yes (Death, Hospitalization)
  Sender: FDA-Public Use
  Company Number: US-ABBVIE-20K-163-3381356-00

PATIENT
  Age: 84 Year
  Sex: Female
  Weight: 49.03 kg

DRUGS (1)
  1. VENCLEXTA [Suspect]
     Active Substance: VENETOCLAX
     Indication: CHRONIC LYMPHOCYTIC LEUKAEMIA
     Route: 048
     Dates: start: 20200209, end: 202004

REACTIONS (7)
  - Pulmonary oedema [Fatal]
  - Gastrointestinal oedema [Fatal]
  - Asthenia [Recovered/Resolved]
  - Abdominal distension [Fatal]
  - Platelet count decreased [Not Recovered/Not Resolved]
  - Oncologic complication [Fatal]
  - White blood cell count decreased [Not Recovered/Not Resolved]

NARRATIVE: CASE EVENT DATE: 202002
